FAERS Safety Report 6651661-8 (Version None)
Quarter: 2010Q1

REPORT INFORMATION
  Report Type: 
  Country: None (occurrence: None)
  Receive Date: 20100325
  Receipt Date: 20100319
  Transmission Date: 20100710
  Serious: Yes (Life-Threatening, Hospitalization, Other)
  Sender: FDA-Public Use
  Company Number: US-ROXANE LABORATORIES, INC.-2010-RO-00323RO

PATIENT
  Age: 30 Year
  Sex: Male

DRUGS (10)
  1. METHADONE [Suspect]
     Indication: DRUG WITHDRAWAL MAINTENANCE THERAPY
     Route: 048
  2. ALPRAZOLAM INTENSOL [ORAL SOLUTION (CONCENTRATE)] 1 MG/ML [Suspect]
  3. LIDOCAINE [Suspect]
  4. NALOXONE [Suspect]
     Indication: OVERDOSE
  5. ETOMIDATE [Suspect]
     Indication: ENDOTRACHEAL INTUBATION
     Dosage: 20 MG
     Route: 042
  6. VECURONIUM [Suspect]
     Indication: ENDOTRACHEAL INTUBATION
  7. TETRAHYDROCANNIBOL [Suspect]
  8. OXYCODONE HCL [Suspect]
  9. METRONIDAZOLE [Suspect]
  10. OXYGEN [Concomitant]
     Indication: RESPIRATORY FAILURE
     Route: 055

REACTIONS (12)
  - AGITATION [None]
  - APNOEA [None]
  - BLOOD PRESSURE DECREASED [None]
  - DEAFNESS NEUROSENSORY [None]
  - DEPRESSED LEVEL OF CONSCIOUSNESS [None]
  - DRUG SCREEN POSITIVE [None]
  - HEART RATE DECREASED [None]
  - OVERDOSE [None]
  - RESPIRATORY DEPRESSION [None]
  - RESPIRATORY FAILURE [None]
  - SCREAMING [None]
  - UNRESPONSIVE TO STIMULI [None]
